FAERS Safety Report 5426792-0 (Version None)
Quarter: 2007Q3

REPORT INFORMATION
  Report Type: 
  Country: None (occurrence: None)
  Receive Date: 20070827
  Receipt Date: 20070119
  Transmission Date: 20080115
  Serious: No
  Sender: FDA-Public Use
  Company Number: US-BOEHRINGER INGELHEIM PHARMACEUTICALS, INC.-2006-BP-14071BP

PATIENT
  Age: 63 Year
  Sex: Male

DRUGS (7)
  1. CATAPRES-TTS-1 [Suspect]
     Indication: HEADACHE
     Route: 061
     Dates: start: 20060914, end: 20070110
  2. LIPITOR [Concomitant]
     Indication: BLOOD CHOLESTEROL INCREASED
     Dates: start: 20020101
  3. DIOVAN [Concomitant]
     Indication: HYPERTENSION
     Dates: start: 20010101
  4. FOLATE [Concomitant]
     Indication: VITAMIN SUPPLEMENTATION
  5. ASPIRIN [Concomitant]
     Indication: CEREBROVASCULAR ACCIDENT PROPHYLAXIS
     Dates: start: 19990101
  6. KLONOPIN [Concomitant]
     Indication: HEADACHE
     Dates: start: 20060901
  7. XYLOCAINE [Concomitant]
     Indication: HEADACHE
     Dates: start: 20060901

REACTIONS (6)
  - APPLICATION SITE ERYTHEMA [None]
  - APPLICATION SITE PRURITUS [None]
  - APPLICATION SITE REACTION [None]
  - BLISTER [None]
  - PRURITUS [None]
  - RASH MACULO-PAPULAR [None]
